FAERS Safety Report 5233369-9 (Version None)
Quarter: 2007Q1

REPORT INFORMATION
  Report Type: 
  Country: None (occurrence: None)
  Receive Date: 20070207
  Receipt Date: 20070207
  Transmission Date: 20070707
  Serious: Yes (Other)
  Sender: FDA-Public Use
  Company Number: None

PATIENT
  Age: 58 Year
  Sex: Female
  Weight: 48.9885 kg

DRUGS (1)
  1. ATENOLOL [Suspect]
     Indication: ARRHYTHMIA
     Dosage: ONE TABLET AT 9:30 PM DAILY
     Dates: start: 20070123, end: 20070129

REACTIONS (3)
  - BURNING SENSATION [None]
  - NAUSEA [None]
  - VOMITING [None]
